FAERS Safety Report 7340745-7 (Version None)
Quarter: 2011Q1

REPORT INFORMATION
  Report Type: 
  Country: None (occurrence: None)
  Receive Date: 20110225
  Receipt Date: 20110222
  Transmission Date: 20110831
  Serious: Yes (Death, Other)
  Sender: FDA-Public Use
  Company Number: ALA_01812_2011

PATIENT
  Sex: Female

DRUGS (1)
  1. REGLAN [Suspect]
     Indication: PRODUCT USED FOR UNKNOWN INDICATION
     Dosage: 10 MG ORAL
     Route: 048
     Dates: start: 20070701, end: 20090501

REACTIONS (3)
  - EMOTIONAL DISORDER [None]
  - ECONOMIC PROBLEM [None]
  - EXTRAPYRAMIDAL DISORDER [None]
